FAERS Safety Report 13685284 (Version 2)
Quarter: 2017Q3

REPORT INFORMATION
  Report Type: Report from Study
  Country: KR (occurrence: KR)
  Receive Date: 20170623
  Receipt Date: 20170714
  Transmission Date: 20171127
  Serious: Yes (Death, Hospitalization, Other)
  Sender: FDA-Public Use
  Company Number: KR-GLAXOSMITHKLINE-KR2017GSK092664

PATIENT
  Age: 77 Year
  Sex: Male
  Weight: 56 kg

DRUGS (11)
  1. ASIMA [Concomitant]
     Indication: ASTHMA
     Dosage: 400 MG, BID
     Route: 048
     Dates: start: 20170125, end: 20170429
  2. ALLELOCK [Concomitant]
     Active Substance: OLOPATADINE HYDROCHLORIDE
     Indication: RHINITIS ALLERGIC
     Dosage: 5 MG, BID
     Route: 048
     Dates: start: 20161230, end: 20170429
  3. FLUTICASONE FUROATE + VILANTEROL TRIFENATATE [Suspect]
     Active Substance: FLUTICASONE FUROATE\VILANTEROL TRIFENATATE
     Indication: ASTHMA
     Dosage: 25 MG, QD
     Route: 055
     Dates: start: 20161230, end: 20170429
  4. DEXILANT [Concomitant]
     Active Substance: DEXLANSOPRAZOLE
     Indication: GASTROOESOPHAGEAL REFLUX DISEASE
     Dosage: 30 MG, QD
     Route: 048
     Dates: start: 20170113, end: 20170429
  5. STABLON [Concomitant]
     Active Substance: TIANEPTINE
     Indication: DEPRESSION
     Dosage: 12.5 MG, BID
     Route: 048
     Dates: start: 20160614, end: 20170429
  6. DEPAS [Concomitant]
     Active Substance: ETIZOLAM
     Indication: ANXIETY DISORDER
     Dosage: 0.25 MG, BID
     Route: 048
     Dates: start: 20161018, end: 20170116
  7. CYMBALTA [Concomitant]
     Active Substance: DULOXETINE HYDROCHLORIDE
     Indication: OSTEOARTHRITIS
     Dosage: 30 MG, QD
     Route: 048
     Dates: start: 20170117, end: 20170429
  8. CIPROURO [Concomitant]
     Indication: BLADDER CANCER
     Dosage: 500 MG, QD
     Route: 048
     Dates: start: 20161018, end: 20170429
  9. ONON [Concomitant]
     Active Substance: PRANLUKAST
     Indication: ASTHMA
     Dosage: 225 MG, BID
     Route: 048
     Dates: start: 20161230, end: 20170429
  10. TOVIAZ [Concomitant]
     Active Substance: FESOTERODINE FUMARATE
     Indication: NEUROGENIC BLADDER
     Dosage: 4 MG, QD
     Route: 048
     Dates: start: 20161018, end: 20170429
  11. SURFOLASE [Concomitant]
     Indication: ASTHMA
     Dosage: 100 MG, BID
     Route: 048
     Dates: start: 20161230, end: 20170429

REACTIONS (1)
  - Intestinal obstruction [Fatal]

NARRATIVE: CASE EVENT DATE: 20170429
